FAERS Safety Report 13045468 (Version 1)
Quarter: 2016Q4

REPORT INFORMATION
  Report Type: Report from Study
  Country: US (occurrence: US)
  Receive Date: 20161220
  Receipt Date: 20161220
  Transmission Date: 20170207
  Serious: Yes (Hospitalization, Other)
  Sender: FDA-Public Use
  Company Number: US-BAYER-2016-152895

PATIENT
  Age: 58 Year
  Sex: Female

DRUGS (6)
  1. BETASERON [Suspect]
     Active Substance: INTERFERON BETA-1B
     Indication: RELAPSING-REMITTING MULTIPLE SCLEROSIS
     Dosage: 0.3 MG, QOD
     Route: 058
     Dates: start: 20160105
  2. BETASERON [Suspect]
     Active Substance: INTERFERON BETA-1B
     Indication: RELAPSING-REMITTING MULTIPLE SCLEROSIS
     Dosage: UNK
     Dates: start: 20031024, end: 20071201
  3. BETASERON [Suspect]
     Active Substance: INTERFERON BETA-1B
     Indication: RELAPSING-REMITTING MULTIPLE SCLEROSIS
     Dosage: UNK
     Dates: start: 20090328, end: 20100328
  4. BETACONNECT [Suspect]
     Active Substance: DEVICE
     Dosage: UNK
  5. BETASERON [Suspect]
     Active Substance: INTERFERON BETA-1B
     Indication: RELAPSING-REMITTING MULTIPLE SCLEROSIS
     Dosage: 8 MIU, QOD
     Route: 058
     Dates: start: 20160425
  6. BETASERON [Suspect]
     Active Substance: INTERFERON BETA-1B
     Indication: RELAPSING-REMITTING MULTIPLE SCLEROSIS
     Dosage: UNK
     Dates: start: 20140729

REACTIONS (30)
  - Disturbance in attention [Recovered/Resolved]
  - Vitamin D deficiency [None]
  - Musculoskeletal pain [None]
  - Areflexia [None]
  - Injection site pain [None]
  - Nuclear magnetic resonance imaging brain abnormal [None]
  - Lipoma of breast [None]
  - Intervertebral disc disorder [None]
  - Migraine [None]
  - Facial pain [None]
  - Mass [None]
  - Sensory disturbance [Recovered/Resolved]
  - Depression [Recovered/Resolved]
  - Multiple sclerosis relapse [Recovered/Resolved]
  - Burning sensation [Recovered/Resolved]
  - Vertigo [Recovered/Resolved]
  - Muscular weakness [None]
  - Paraesthesia [Recovered/Resolved]
  - Muscular weakness [Recovered/Resolved]
  - Hypoaesthesia [Recovered/Resolved]
  - Vertebral foraminal stenosis [None]
  - Acute motor-sensory axonal neuropathy [None]
  - Injection site mass [Not Recovered/Not Resolved]
  - Paraesthesia [None]
  - Joint range of motion decreased [None]
  - Lipoma [None]
  - Chills [None]
  - Injection site mass [None]
  - Motor dysfunction [Recovered/Resolved]
  - Fatigue [Recovered/Resolved]

NARRATIVE: CASE EVENT DATE: 20150805
